FAERS Safety Report 7242019-1 (Version None)
Quarter: 2011Q1

REPORT INFORMATION
  Report Type: 
  Country: None (occurrence: None)
  Receive Date: 20110124
  Receipt Date: 20110111
  Transmission Date: 20110831
  Serious: Yes (Other)
  Sender: FDA-Public Use
  Company Number: DK-MYLANLABS-2011S1000963

PATIENT
  Age: 26 Year
  Sex: Male

DRUGS (6)
  1. LAMIVUDINE [Concomitant]
     Indication: HEPATITIS B
     Route: 065
  2. DOXORUBICIN [Suspect]
     Indication: DIFFUSE LARGE B-CELL LYMPHOMA STAGE IV
     Route: 065
     Dates: end: 20080501
  3. RITUXIMAB [Suspect]
     Indication: DIFFUSE LARGE B-CELL LYMPHOMA STAGE IV
     Route: 065
     Dates: end: 20080501
  4. VINCRISTINE [Suspect]
     Indication: DIFFUSE LARGE B-CELL LYMPHOMA STAGE IV
     Route: 065
     Dates: end: 20080501
  5. CYCLOPHOSPHAMIDE [Suspect]
     Indication: DIFFUSE LARGE B-CELL LYMPHOMA STAGE IV
     Route: 065
     Dates: end: 20080501
  6. ETOPOSIDE [Suspect]
     Indication: DIFFUSE LARGE B-CELL LYMPHOMA STAGE IV
     Route: 065
     Dates: end: 20080501

REACTIONS (1)
  - HEPATITIS D [None]
